FAERS Safety Report 26147571 (Version 2)
Quarter: 2025Q4

REPORT INFORMATION
  Report Type: Spontaneous
  Country: US (occurrence: US)
  Receive Date: 20251211
  Receipt Date: 20251216
  Transmission Date: 20260117
  Serious: Yes (Other)
  Sender: GLAXOSMITHKLINE
  Company Number: US-ABBVIE-6579334

PATIENT
  Sex: Female

DRUGS (3)
  1. IMITREX [Suspect]
     Active Substance: SUMATRIPTAN SUCCINATE
     Indication: Migraine
     Dosage: UNK
     Route: 065
  2. BOTOX [Suspect]
     Active Substance: ONABOTULINUMTOXINA
     Indication: Product used for unknown indication
     Dosage: UNK (AS NECESSARY)
     Route: 065
  3. UBRELVY [Suspect]
     Active Substance: UBROGEPANT
     Indication: Migraine
     Dosage: UNK

REACTIONS (8)
  - Shoulder operation [Unknown]
  - Giant cell arteritis [Unknown]
  - Contusion [Unknown]
  - Arteritis [Unknown]
  - Facet joint syndrome [Unknown]
  - Occipital neuralgia [Unknown]
  - Migraine [Unknown]
  - Temporomandibular pain and dysfunction syndrome [Unknown]
